FAERS Safety Report 19501495 (Version 2)
Quarter: 2021Q3

REPORT INFORMATION
  Report Type: Spontaneous
  Country: JP (occurrence: JP)
  Receive Date: 20210707
  Receipt Date: 20210831
  Transmission Date: 20211014
  Serious: Yes (Other)
  Sender: FDA-Public Use
  Company Number: JP-CELGENEUS-JPN-20210700279

PATIENT
  Age: 8 Decade
  Sex: Male

DRUGS (4)
  1. GEMCITABINE. [Concomitant]
     Active Substance: GEMCITABINE
     Indication: PANCREATIC CARCINOMA
     Route: 041
  2. ABRAXANE [Suspect]
     Active Substance: PACLITAXEL
     Indication: PANCREATIC CARCINOMA
     Route: 041
  3. GEMCITABINE. [Concomitant]
     Active Substance: GEMCITABINE
     Route: 041
  4. ABRAXANE [Suspect]
     Active Substance: PACLITAXEL
     Route: 041

REACTIONS (1)
  - Large intestine perforation [Unknown]

NARRATIVE: CASE EVENT DATE: 20210623
